FAERS Safety Report 4313949-5 (Version None)
Quarter: 2004Q1

REPORT INFORMATION
  Report Type: 
  Country: None (occurrence: None)
  Receive Date: 20040305
  Receipt Date: 20040219
  Transmission Date: 20041129
  Serious: Yes (Hospitalization, Disabling, Other)
  Sender: FDA-Public Use
  Company Number: 200410099BFR

PATIENT
  Age: 42 Year
  Sex: Female

DRUGS (4)
  1. CIPROFLOXACIN [Suspect]
     Indication: FEELING COLD
     Dosage: ORAL
     Route: 048
     Dates: start: 19991201
  2. CIPROFLOXACIN [Suspect]
     Indication: PHARYNGOLARYNGEAL PAIN
     Dosage: ORAL
     Route: 048
     Dates: start: 19991201
  3. PREDNISONE [Suspect]
     Indication: RETROPERITONEAL FIBROSIS
     Dosage: 20 MG, TOTAL DAILY, ORAL
     Route: 048
     Dates: start: 19980101, end: 20010501
  4. INSULIN [Concomitant]

REACTIONS (2)
  - ROTATOR CUFF SYNDROME [None]
  - TENDONITIS [None]
